FAERS Safety Report 6527846-8 (Version None)
Quarter: 2010Q1

REPORT INFORMATION
  Report Type: 
  Country: None (occurrence: None)
  Receive Date: 20100105
  Receipt Date: 20100105
  Transmission Date: 20100710
  Serious: Yes (Hospitalization)
  Sender: FDA-Public Use
  Company Number: None

PATIENT
  Age: 29 Year
  Sex: Female
  Weight: 72 kg

DRUGS (1)
  1. LEXAPRO [Suspect]
     Indication: DEPRESSION
     Dosage: 10 MG ONE DAILY ORAL 047
     Route: 048

REACTIONS (6)
  - ANXIETY [None]
  - COAGULOPATHY [None]
  - DEPRESSION [None]
  - HEPATITIS CHOLESTATIC [None]
  - INSOMNIA [None]
  - MENTAL STATUS CHANGES [None]
